FAERS Safety Report 5037335-8 (Version None)
Quarter: 2006Q2

REPORT INFORMATION
  Report Type: 
  Country: None (occurrence: None)
  Receive Date: 20060602
  Receipt Date: 20050309
  Transmission Date: 20061013
  Serious: Yes (Hospitalization)
  Sender: FDA-Public Use
  Company Number: 2005RL000024

PATIENT
  Age: 76 Year
  Sex: Male

DRUGS (6)
  1. NIZATIDINE [Suspect]
     Indication: REFLUX OESOPHAGITIS
     Dosage: 300 MG;QD;PO
     Route: 048
     Dates: start: 20040917, end: 20041101
  2. ADENOSINE TRIPHOSPHATE, DISODIUM SALT [Concomitant]
  3. PANCREATIC ENZYMES [Concomitant]
  4. LACTOBACILLUS BIFIDUS, LYOPHILIZED [Concomitant]
  5. MECOBALAMIN [Concomitant]
  6. TAUROURSODESOXYCHOLIC ACID [Concomitant]

REACTIONS (1)
  - IDIOPATHIC THROMBOCYTOPENIC PURPURA [None]
